FAERS Safety Report 4415067-4 (Version None)
Quarter: 2004Q3

REPORT INFORMATION
  Report Type: 
  Country: None (occurrence: None)
  Receive Date: 20040729
  Receipt Date: 20040719
  Transmission Date: 20050211
  Serious: Yes (Other)
  Sender: FDA-Public Use
  Company Number: S04-USA-04386-01

PATIENT
  Age: 53 Year
  Sex: Female

DRUGS (5)
  1. LEXAPRO [Suspect]
     Indication: DEPRESSION
     Dosage: 20 MG QD PO
     Route: 048
  2. TOPAMAX [Suspect]
     Indication: AFFECTIVE DISORDER
     Dosage: 100 MG QAM
     Dates: start: 20030422, end: 20040303
  3. TOPAMAX [Suspect]
     Indication: AFFECTIVE DISORDER
     Dosage: 200 MG QHS
     Dates: start: 20030422, end: 20040303
  4. WELLBUTRIN [Suspect]
     Indication: DEPRESSION
     Dosage: 200 MG BID
  5. TOPAMAX [Concomitant]

REACTIONS (1)
  - THROMBOCYTOPENIA [None]
